FAERS Safety Report 9217831 (Version 1)
Quarter: 2013Q2

REPORT INFORMATION
  Report Type: Spontaneous
  Country: MX (occurrence: MX)
  Receive Date: 20130408
  Receipt Date: 20130408
  Transmission Date: 20140414
  Serious: Yes (Other)
  Sender: FDA-Public Use
  Company Number: PHHY2013MX033448

PATIENT
  Age: 80 Year
  Sex: Male

DRUGS (1)
  1. RASILEZ [Suspect]
     Indication: HYPERTENSION
     Dosage: 1 DF, (300MG), DAILY
     Route: 048
     Dates: start: 201204

REACTIONS (2)
  - Embolism [Unknown]
  - Hemiplegia [Unknown]
